FAERS Safety Report 7764836-1 (Version None)
Quarter: 2011Q3

REPORT INFORMATION
  Report Type: 
  Country: None (occurrence: None)
  Receive Date: 20110921
  Receipt Date: 20110916
  Transmission Date: 20111222
  Serious: Yes (Hospitalization, Other)
  Sender: FDA-Public Use
  Company Number: US-PFIZER INC-2011057611

PATIENT
  Sex: Male

DRUGS (1)
  1. CHANTIX [Suspect]
     Indication: SMOKING CESSATION THERAPY
     Dosage: STARTER PACK
     Dates: start: 20090422, end: 20091104

REACTIONS (8)
  - IMPAIRED DRIVING ABILITY [None]
  - AGGRESSION [None]
  - ABNORMAL BEHAVIOUR [None]
  - EMOTIONAL DISTRESS [None]
  - SUICIDAL IDEATION [None]
  - INJURY [None]
  - MENTAL DISORDER [None]
  - DEPRESSION [None]
